FAERS Safety Report 9821161 (Version 1)
Quarter: 2014Q1

REPORT INFORMATION
  Report Type: Spontaneous
  Country: FR (occurrence: FR)
  Receive Date: 20140116
  Receipt Date: 20140116
  Transmission Date: 20141002
  Serious: Yes (Other)
  Sender: FDA-Public Use
  Company Number: FR-ASTRAZENECA-2014SE02314

PATIENT
  Age: 41 Year
  Sex: Female

DRUGS (8)
  1. INEXIUM [Suspect]
     Route: 048
     Dates: start: 20130814, end: 20130909
  2. CELLCEPT [Suspect]
     Indication: PROPHYLAXIS AGAINST TRANSPLANT REJECTION
     Route: 048
     Dates: start: 20130703, end: 20130909
  3. DOLIPRANE [Suspect]
     Route: 065
  4. ROVALCYTE [Suspect]
     Indication: ANTIVIRAL PROPHYLAXIS
     Route: 048
     Dates: start: 20130703, end: 20131128
  5. ADVAGRAF [Suspect]
     Route: 065
  6. CORTANCYL [Suspect]
     Route: 065
  7. LASILIX SPECIAL [Suspect]
     Route: 065
  8. NEBIVOLOL [Suspect]
     Route: 065

REACTIONS (1)
  - Neutropenia [Not Recovered/Not Resolved]
